FAERS Safety Report 21498326 (Version 3)
Quarter: 2022Q4

REPORT INFORMATION
  Report Type: Spontaneous
  Country: TR (occurrence: TR)
  Receive Date: 20221024
  Receipt Date: 20221110
  Transmission Date: 20230112
  Serious: Yes (Other)
  Sender: FDA-Public Use
  Company Number: TR-NOVARTISPH-NVSC2022TR238107

PATIENT
  Age: 81 Year
  Sex: Female

DRUGS (1)
  1. METFORMIN HYDROCHLORIDE\VILDAGLIPTIN [Suspect]
     Active Substance: METFORMIN HYDROCHLORIDE\VILDAGLIPTIN
     Indication: Diabetes mellitus
     Dosage: MORE THAN 5 YEARS, BID (MORNING/ EVENING AFTER EATING)
     Route: 048

REACTIONS (2)
  - Hip fracture [Recovering/Resolving]
  - Counterfeit product administered [Unknown]
